FAERS Safety Report 16234256 (Version 2)
Quarter: 2019Q3

REPORT INFORMATION
  Report Type: Report from Study
  Country: US (occurrence: US)
  Receive Date: 20190424
  Receipt Date: 20190702
  Transmission Date: 20191004
  Serious: Yes (Life-Threatening, Hospitalization)
  Sender: FDA-Public Use
  Company Number: PHEH2019US017003

PATIENT
  Sex: Male
  Weight: 4.6 kg

DRUGS (5)
  1. ASPIRIN. [Concomitant]
     Active Substance: ASPIRIN
     Indication: PULMONARY VEIN STENOSIS
     Dosage: 405 MG, QD
     Route: 048
  2. GLEEVEC [Suspect]
     Active Substance: IMATINIB MESYLATE
     Indication: PULMONARY VEIN STENOSIS
     Dosage: 95 MG, QD
     Route: 048
  3. SILDENAFIL. [Concomitant]
     Active Substance: SILDENAFIL
     Indication: PULMONARY ARTERIAL HYPERTENSION
     Dosage: 4.5 MG, TID
     Route: 048
  4. PLAVIX [Concomitant]
     Active Substance: CLOPIDOGREL BISULFATE
     Indication: PULMONARY VEIN STENOSIS
     Dosage: 1.3 MG, QD
     Route: 048
  5. ZANTAC [Concomitant]
     Active Substance: RANITIDINE HYDROCHLORIDE
     Indication: GASTROOESOPHAGEAL REFLUX DISEASE
     Dosage: 10 MG, TID
     Route: 048

REACTIONS (6)
  - Disease recurrence [Recovering/Resolving]
  - Product use in unapproved indication [Recovering/Resolving]
  - Dehydration [Recovering/Resolving]
  - Viral infection [Unknown]
  - Lung disorder [Unknown]
  - Pulmonary vein stenosis [Recovering/Resolving]
